FAERS Safety Report 5076985-X (Version None)
Quarter: 2006Q3

REPORT INFORMATION
  Report Type: 
  Country: None (occurrence: None)
  Receive Date: 20060810
  Receipt Date: 20060801
  Transmission Date: 20061208
  Serious: Yes (Other)
  Sender: FDA-Public Use
  Company Number: DE-GLAXOSMITHKLINE-D0050498A

PATIENT
  Age: 48 Year
  Sex: Male
  Weight: 132 kg

DRUGS (5)
  1. AVANDAMET [Suspect]
     Route: 048
     Dates: start: 20050101
  2. COVERSUM [Concomitant]
     Indication: HYPERTENSION
     Route: 065
     Dates: start: 20040101
  3. STARLIX [Concomitant]
     Route: 065
     Dates: start: 20060101
  4. OMEPRAZOLE [Concomitant]
     Route: 065
     Dates: start: 20040101
  5. CARVEDILOL [Concomitant]
     Indication: HYPERTENSION
     Route: 065
     Dates: start: 20040101

REACTIONS (7)
  - DIZZINESS [None]
  - FEELING HOT [None]
  - HYPERHIDROSIS [None]
  - LACTIC ACIDOSIS [None]
  - NAUSEA [None]
  - PYREXIA [None]
  - SOPOR [None]
